FAERS Safety Report 24081188 (Version 1)
Quarter: 2024Q3

REPORT INFORMATION
  Report Type: Spontaneous
  Country: US (occurrence: US)
  Receive Date: 20240711
  Receipt Date: 20240711
  Transmission Date: 20241016
  Serious: No
  Sender: KRAMER LABORATORIES
  Company Number: US-KRAMERLABS-2024-US-011013

PATIENT
  Sex: Male

DRUGS (2)
  1. NIZORAL A-D [Suspect]
     Active Substance: KETOCONAZOLE
     Indication: Dandruff
     Route: 061
     Dates: start: 202311
  2. NIZORAL PSORIASIS [Suspect]
     Active Substance: SALICYLIC ACID
     Route: 061

REACTIONS (3)
  - Drug ineffective [Unknown]
  - Mechanical urticaria [Unknown]
  - Condition aggravated [Unknown]

NARRATIVE: CASE EVENT DATE: 20231101
